FAERS Safety Report 17356143 (Version 1)
Quarter: 2020Q1

REPORT INFORMATION
  Report Type: Spontaneous
  Country: GB (occurrence: GB)
  Receive Date: 20200131
  Receipt Date: 20200131
  Transmission Date: 20200409
  Serious: Yes (Other)
  Sender: FDA-Public Use
  Company Number: NVSC2020GB023527

PATIENT
  Age: 23 Year
  Sex: Female
  Weight: 55 kg

DRUGS (4)
  1. NITROFURANTOIN. [Concomitant]
     Active Substance: NITROFURANTOIN
     Indication: PRODUCT USED FOR UNKNOWN INDICATION
     Dosage: 2 DF, QD (FOR 3 DAYS)
     Route: 065
     Dates: start: 20191010, end: 20191013
  2. CO-AMOXICLAV [Suspect]
     Active Substance: AMOXICILLIN\CLAVULANATE POTASSIUM
     Indication: PRODUCT USED FOR UNKNOWN INDICATION
     Dosage: UNK(500 MG/125 MG), TABLET
     Route: 065
     Dates: start: 20191011, end: 20191018
  3. CERELLE [Concomitant]
     Active Substance: DESOGESTREL
     Indication: PRODUCT USED FOR UNKNOWN INDICATION
     Dosage: 1 DF, QD
     Route: 065
     Dates: start: 20191014
  4. SALICYLIC ACID. [Concomitant]
     Active Substance: SALICYLIC ACID
     Indication: PRODUCT USED FOR UNKNOWN INDICATION
     Dosage: 1 DF, QD (PROTECT HEALTHY SKIN WITH VASELINE)
     Route: 065
     Dates: start: 20190905, end: 20190906

REACTIONS (1)
  - Lip swelling [Recovered/Resolved]
